FAERS Safety Report 4642431-0 (Version None)
Quarter: 2005Q2

REPORT INFORMATION
  Report Type: 
  Country: None (occurrence: None)
  Receive Date: 20050422
  Receipt Date: 20050315
  Transmission Date: 20051028
  Serious: Yes (Disabling)
  Sender: FDA-Public Use
  Company Number: FR-ROCHE-398699

PATIENT
  Sex: Female

DRUGS (1)
  1. TAMIFLU [Suspect]
     Indication: INFLUENZA
     Route: 048
     Dates: start: 20050112

REACTIONS (9)
  - CHEST PAIN [None]
  - DIARRHOEA [None]
  - DYSSTASIA [None]
  - LUNG DISORDER [None]
  - LUNG INFECTION [None]
  - NAUSEA [None]
  - PLEURAL EFFUSION [None]
  - PLEURISY [None]
  - VOMITING [None]
